FAERS Safety Report 9101749 (Version 4)
Quarter: 2013Q2

REPORT INFORMATION
  Report Type: Spontaneous
  Country: US (occurrence: US)
  Receive Date: 20130218
  Receipt Date: 20130424
  Transmission Date: 20140414
  Serious: No
  Sender: FDA-Public Use
  Company Number: US-009507513-1302USA004603

PATIENT
  Sex: Female
  Weight: 114.29 kg

DRUGS (4)
  1. REBETOL [Suspect]
     Indication: HEPATITIS C
     Dosage: UNK
     Dates: start: 20130112, end: 20130321
  2. VICTRELIS [Suspect]
     Indication: HEPATITIS C
     Dosage: UNK
     Dates: start: 20130210, end: 20130321
  3. PEGASYS [Suspect]
     Indication: HEPATITIS C
     Dosage: UNK
     Dates: start: 20130112, end: 20130321
  4. OXYCONTIN [Concomitant]
     Indication: FIBROMYALGIA
     Dosage: UNK

REACTIONS (33)
  - Headache [Unknown]
  - Diarrhoea [Unknown]
  - Cough [Unknown]
  - Visual impairment [Unknown]
  - Cough [Unknown]
  - Gastrointestinal disorder [Unknown]
  - Asthenia [Unknown]
  - Tremor [Unknown]
  - Leukopenia [Unknown]
  - Anaemia [Unknown]
  - Metabolic disorder [Unknown]
  - White blood cell count decreased [Unknown]
  - Haemoglobin decreased [Unknown]
  - Malnutrition [Unknown]
  - Nausea [Unknown]
  - Blood count abnormal [Unknown]
  - Blood count abnormal [Unknown]
  - Influenza like illness [Unknown]
  - Fatigue [Recovering/Resolving]
  - Chills [Unknown]
  - Fibromyalgia [Unknown]
  - Faeces pale [Recovering/Resolving]
  - Blood count abnormal [Unknown]
  - Blood count abnormal [Unknown]
  - Fatigue [Unknown]
  - Dizziness [Unknown]
  - Hyperhidrosis [Unknown]
  - Nausea [Unknown]
  - Palpitations [Unknown]
  - Palpitations [Unknown]
  - Yellow skin [Unknown]
  - Skin discolouration [Unknown]
  - Defaecation urgency [Unknown]
